FAERS Safety Report 7331806-7 (Version None)
Quarter: 2011Q1

REPORT INFORMATION
  Report Type: 
  Country: None (occurrence: None)
  Receive Date: 20110304
  Receipt Date: 20090910
  Transmission Date: 20110831
  Serious: Yes (Hospitalization, Other)
  Sender: FDA-Public Use
  Company Number: US-PFIZER INC-2008095654

PATIENT
  Sex: Female

DRUGS (5)
  1. PHENYTOIN SODIUM [Suspect]
  2. DILANTIN [Suspect]
     Indication: CONVULSION
     Dosage: UNK
     Route: 048
     Dates: start: 20041201, end: 20050125
  3. CIPROFLOXACIN [Suspect]
  4. BENADRYL [Concomitant]
  5. SYNTHROID [Concomitant]

REACTIONS (1)
  - STEVENS-JOHNSON SYNDROME [None]
